FAERS Safety Report 14008537 (Version 2)
Quarter: 2017Q4

REPORT INFORMATION
  Report Type: Spontaneous
  Country: IT (occurrence: IT)
  Receive Date: 20170925
  Receipt Date: 20171002
  Transmission Date: 20180321
  Serious: Yes (Hospitalization)
  Sender: FDA-Public Use
  Company Number: IT-TEVA-807858ACC

PATIENT
  Age: 54 Year
  Sex: Female

DRUGS (1)
  1. CARBOLITHIUM - 300 MG CAPSULE RIGIDE - TEVA ITALIA S.R.L. [Suspect]
     Active Substance: LITHIUM CARBONATE
     Indication: PRODUCT USED FOR UNKNOWN INDICATION
     Route: 048
     Dates: start: 20170308, end: 20170308

REACTIONS (4)
  - Bradyphrenia [Unknown]
  - Dyskinesia [Unknown]
  - Blood creatinine increased [Unknown]
  - Confusional state [Unknown]

NARRATIVE: CASE EVENT DATE: 20170308
